FAERS Safety Report 7748359-1 (Version None)
Quarter: 2011Q3

REPORT INFORMATION
  Report Type: 
  Country: None (occurrence: None)
  Receive Date: 20110913
  Receipt Date: 20110909
  Transmission Date: 20111222
  Serious: Yes (Hospitalization)
  Sender: FDA-Public Use
  Company Number: PHHY2010US20664

PATIENT
  Sex: Female
  Weight: 45.36 kg

DRUGS (3)
  1. ANTIBIOTICS [Concomitant]
  2. EXJADE [Suspect]
     Indication: MYELODYSPLASTIC SYNDROME
     Dosage: 500 MG, DAILY
     Route: 048
     Dates: start: 20090923, end: 20110401
  3. EXJADE [Suspect]
     Indication: NEOPLASM
     Dosage: 500 MG, QD
     Route: 048
     Dates: start: 20110601

REACTIONS (6)
  - RIB FRACTURE [None]
  - DIARRHOEA [None]
  - PAIN IN EXTREMITY [None]
  - POLLAKIURIA [None]
  - INFECTION [None]
  - MALAISE [None]
